FAERS Safety Report 7971724-4 (Version None)
Quarter: 2011Q4

REPORT INFORMATION
  Report Type: 
  Country: None (occurrence: None)
  Receive Date: 20111212
  Receipt Date: 20111201
  Transmission Date: 20120403
  Serious: Yes (Other)
  Sender: FDA-Public Use
  Company Number: US-ASTRAZENECA-2011SE68094

PATIENT
  Sex: Female

DRUGS (4)
  1. NEXIUM [Suspect]
     Route: 048
     Dates: start: 20050101
  2. PRILOSEC [Suspect]
     Dosage: TWO TIMES A DAY
     Route: 048
  3. PREVACID [Concomitant]
     Route: 048
  4. PRILOSEC [Suspect]
     Route: 048

REACTIONS (10)
  - BLOOD DISORDER [None]
  - TREATMENT FAILURE [None]
  - DRUG INEFFECTIVE [None]
  - DRUG DOSE OMISSION [None]
  - ERUCTATION [None]
  - NEOPLASM MALIGNANT [None]
  - GASTROOESOPHAGEAL REFLUX DISEASE [None]
  - OESOPHAGEAL SPASM [None]
  - CHEST PAIN [None]
  - LYMPHOMA [None]
